FAERS Safety Report 20125356 (Version 1)
Quarter: 2021Q4

REPORT INFORMATION
  Report Type: Spontaneous
  Country: US (occurrence: None)
  Receive Date: 20211127
  Receipt Date: 20211127
  Transmission Date: 20220303
  Serious: Yes (Other)
  Sender: FDA-Public Use
  Company Number: None

PATIENT
  Age: 9 Year
  Sex: Female
  Weight: 51.75 kg

DRUGS (5)
  1. DESONIDE [Suspect]
     Active Substance: DESONIDE
     Indication: Eczema
     Dosage: FREQUENCY : TWICE A DAY;?
     Route: 061
     Dates: start: 20201215, end: 20211118
  2. TRIAMCINOLONE [Suspect]
     Active Substance: TRIAMCINOLONE
  3. MOMETASONE [Suspect]
     Active Substance: MOMETASONE
  4. FLUOCINONIDE [Suspect]
     Active Substance: FLUOCINONIDE
  5. VITAMIN FOR SKIN HEALING VANICREAM [Concomitant]

REACTIONS (2)
  - Topical steroid withdrawal reaction [None]
  - Bell^s palsy [None]

NARRATIVE: CASE EVENT DATE: 20211127
